FAERS Safety Report 7306347-3 (Version None)
Quarter: 2011Q1

REPORT INFORMATION
  Report Type: 
  Country: None (occurrence: None)
  Receive Date: 20110210
  Receipt Date: 20110125
  Transmission Date: 20110831
  Serious: Yes (Other)
  Sender: FDA-Public Use
  Company Number: NL-DEXPHARM-20110117

PATIENT

DRUGS (7)
  1. METOPROLOL [Concomitant]
  2. OMEPRAZOLE [Suspect]
     Indication: GASTROOESOPHAGEAL REFLUX DISEASE
     Dosage: 40 MG MILLIGRAM(S) SEP.DOSAGE/INTERVAL: 1 IN 1 DAY
  3. AMLODIPINE [Concomitant]
  4. ATORVASTATIN CALCIUM [Concomitant]
  5. CALCIUM CARBOSYLATE [Concomitant]
  6. METFORMIN [Concomitant]
  7. FUROSEMIDE [Concomitant]

REACTIONS (4)
  - BLOOD PARATHYROID HORMONE DECREASED [None]
  - HYPOCALCAEMIA [None]
  - HYPOMAGNESAEMIA [None]
  - HYPOKALAEMIA [None]
